FAERS Safety Report 8935770 (Version 1)
Quarter: 2012Q4

REPORT INFORMATION
  Report Type: 
  Country: IT (occurrence: IT)
  Receive Date: 20121130
  Receipt Date: 20121130
  Transmission Date: 20130627
  Serious: Yes (Hospitalization, Other)
  Sender: FDA-Public Use
  Company Number: IT-BRISTOL-MYERS SQUIBB COMPANY-17143678

PATIENT
  Age: 81 Year
  Sex: Female

DRUGS (10)
  1. COUMADIN TABS 5 MG [Suspect]
     Indication: ATRIAL FIBRILLATION
     Dosage: 1 df = 1 dosage unit
     Route: 048
     Dates: start: 20080902, end: 20121030
  2. SPIRIVA [Concomitant]
     Dosage: 1 df = 1 dosage unit
18 mCG tablets
  3. LASIX [Concomitant]
     Dosage: 1 df = 1 dosage unit:25 mg tabs
     Route: 048
  4. LANOXIN [Concomitant]
     Dosage: 1 df = 1 dosage unit:0.0625 tabs
  5. SERETIDE [Concomitant]
     Dosage: 1 df = 2dosage unit
  6. TRAMADOL [Concomitant]
     Dosage: 100 MG/2ML solution for inj
     Route: 041
  7. PERFALGAN IV INFUSION [Concomitant]
     Dosage: 100 MG/2ML
     Route: 041
  8. LIXIDOL [Concomitant]
     Dosage: 1 df = 30 mg/ml
Soln for inf
     Route: 041
  9. TRIATEC [Concomitant]
     Dosage: tabs:1 dosage units
  10. PLASIL [Concomitant]
     Dosage: 1 df = 10 mg/2ml solution for injection
     Route: 041

REACTIONS (3)
  - Cardiac failure [Unknown]
  - Haematemesis [Recovered/Resolved]
  - Clostridium difficile colitis [Unknown]
